FAERS Safety Report 5303168-8 (Version None)
Quarter: 2007Q2

REPORT INFORMATION
  Report Type: 
  Country: None (occurrence: None)
  Receive Date: 20070420
  Receipt Date: 20070412
  Transmission Date: 20071010
  Serious: Yes (Hospitalization)
  Sender: FDA-Public Use
  Company Number: 2007AP01914

PATIENT
  Age: 20630 Day
  Sex: Male
  Weight: 49.5 kg

DRUGS (5)
  1. OMEPRAL [Suspect]
     Indication: REFLUX OESOPHAGITIS
     Route: 048
     Dates: start: 20060522, end: 20070315
  2. SILECE [Suspect]
     Indication: ALCOHOLISM
     Route: 048
     Dates: start: 20040927, end: 20070315
  3. CERCINE [Suspect]
     Indication: ALCOHOLISM
     Route: 048
     Dates: start: 20070312, end: 20070315
  4. MAGNESIUM OXIDE [Concomitant]
     Indication: ILEUS
     Route: 048
     Dates: start: 20050816
  5. TSUMURA DAI-KENCHI-TOU [Concomitant]
     Indication: ILEUS
     Route: 048
     Dates: start: 20060415

REACTIONS (1)
  - RHABDOMYOLYSIS [None]
